FAERS Safety Report 7761865-9 (Version None)
Quarter: 2011Q3

REPORT INFORMATION
  Report Type: 
  Country: None (occurrence: None)
  Receive Date: 20110915
  Receipt Date: 20110830
  Transmission Date: 20111222
  Serious: Yes (Death, Hospitalization, Other)
  Sender: FDA-Public Use
  Company Number: 2011MA012737

PATIENT
  Age: 13 Year
  Sex: Male

DRUGS (14)
  1. TEMODAL [Suspect]
     Indication: PRODUCT USED FOR UNKNOWN INDICATION
  2. TROPISETRON HYDROCLORIDE (TROPISETRON HYDROCHLORIDE) [Suspect]
     Indication: PROPHYLAXIS OF NAUSEA AND VOMITING
     Dosage: 0.2 MG/KG, IV
     Route: 042
  3. DIMENHYDRINATE [Suspect]
     Indication: PROPHYLAXIS OF NAUSEA AND VOMITING
     Dosage: 2 MG/KG, IV
     Route: 042
  4. SODIUM CHLORIDE 0.9% [Suspect]
     Indication: NEUROENDOCRINE CARCINOMA
     Dosage: .45% IV
     Route: 042
  5. SULFONAMIDES DUPLEX [Suspect]
     Indication: PROPHYLAXIS
     Dosage: 5 MG/KG, BID 3DAYS/WEEK, IV
     Route: 042
  6. GEMCITABINE HYDROCHLORIDE [Suspect]
     Indication: NEUROENDOCRINE CARCINOMA
     Dosage: 1000 MG/M2/0.5 H, IV
     Route: 042
  7. ONDANSETRON [Suspect]
     Indication: PROPHYLAXIS OF NAUSEA AND VOMITING
     Dosage: 5 MG/M2, IV
     Route: 042
  8. IRINOTECAN HCL [Suspect]
     Indication: NEUROENDOCRINE CARCINOMA
     Dosage: 175 MG/M2/2H, IV
     Route: 042
  9. DEXTROSE 5% [Suspect]
     Indication: NEUROENDOCRINE CARCINOMA
     Dosage: 5% AT 3L/M2/D,  IV
     Route: 042
  10. LOPERAMIDE [Suspect]
     Indication: CHOLINERGIC SYNDROME
     Dosage: 2 MG, PO
     Route: 048
  11. TRIMETHOPRIM [Suspect]
     Indication: INFECTION PROPHYLAXIS
     Dosage: 5 MG/KG, BID, 3DAYS/WEEK, IV
     Route: 042
  12. AMPHOTERICIN B [Suspect]
     Indication: INFECTION PROPHYLAXIS
     Dosage: 4 X2 ML/D, PO
     Route: 048
  13. ANTIBIOTICS (ANTIBIOTICS) [Suspect]
     Indication: PROPHYLAXIS
     Dosage: IV
     Route: 042
  14. OXALIPLATIN [Suspect]
     Indication: NEUROENDOCRINE CARCINOMA
     Dosage: 85 MG/M2/2H, IV
     Route: 042

REACTIONS (9)
  - GASTROINTESTINAL TOXICITY [None]
  - NAUSEA [None]
  - VOMITING [None]
  - ANAEMIA [None]
  - TOXICITY TO VARIOUS AGENTS [None]
  - CHOLINERGIC SYNDROME [None]
  - THROMBOCYTOPENIA [None]
  - LEUKOPENIA [None]
  - DIARRHOEA [None]
